FAERS Safety Report 16667237 (Version 1)
Quarter: 2019Q3

REPORT INFORMATION
  Report Type: Spontaneous
  Country: IT (occurrence: IT)
  Receive Date: 20190805
  Receipt Date: 20190805
  Transmission Date: 20191004
  Serious: Yes (Hospitalization, Other)
  Sender: FDA-Public Use
  Company Number: IT-AUROBINDO-AUR-APL-2019-044254

PATIENT

DRUGS (5)
  1. LEVETIRACETAM. [Suspect]
     Active Substance: LEVETIRACETAM
     Indication: GENERALISED TONIC-CLONIC SEIZURE
     Dosage: 7.7 MILLIGRAM/KILOGRAM
     Route: 065
  2. NADROPARIN CALCIUM [Concomitant]
     Active Substance: NADROPARIN CALCIUM
     Indication: PRODUCT USED FOR UNKNOWN INDICATION
  3. DIAZEPAM. [Suspect]
     Active Substance: DIAZEPAM
     Indication: GENERALISED TONIC-CLONIC SEIZURE
     Dosage: 0.3 MILLIGRAM/KILOGRAM
     Route: 042
  4. PANTOPRAZOLE [Concomitant]
     Active Substance: PANTOPRAZOLE
     Indication: PRODUCT USED FOR UNKNOWN INDICATION
     Dosage: UNK
     Route: 065
  5. LORAZEPAM. [Suspect]
     Active Substance: LORAZEPAM
     Indication: GENERALISED TONIC-CLONIC SEIZURE
     Dosage: 0.06 MILLIGRAM/KILOGRAM
     Route: 042

REACTIONS (13)
  - Lactic acidosis [Recovered/Resolved]
  - Platelet count decreased [Recovered/Resolved]
  - Schistocytosis [Recovered/Resolved]
  - Condition aggravated [Recovered/Resolved]
  - Leukocytosis [Recovered/Resolved]
  - Coagulopathy [Recovered/Resolved]
  - Seizure [Recovered/Resolved]
  - International normalised ratio increased [Recovered/Resolved]
  - Disseminated intravascular coagulation [Recovered/Resolved]
  - Alanine aminotransferase increased [Recovered/Resolved]
  - Drug ineffective [Recovered/Resolved]
  - Haemodynamic instability [Recovered/Resolved]
  - Aspartate aminotransferase increased [Recovered/Resolved]
